FAERS Safety Report 6746558-9 (Version None)
Quarter: 2010Q2

REPORT INFORMATION
  Report Type: 
  Country: None (occurrence: None)
  Receive Date: 20100528
  Receipt Date: 20100525
  Transmission Date: 20101027
  Serious: Yes (Other)
  Sender: FDA-Public Use
  Company Number: CHPA2010CA08986

PATIENT
  Age: 26 Year
  Sex: Female
  Weight: 56.689 kg

DRUGS (4)
  1. EX-LAX CHOCOLATED PIECES (NCH) [Suspect]
     Indication: CONSTIPATION
     Dosage: 90 MG, QD
     Route: 048
     Dates: start: 20100521, end: 20100521
  2. EX-LAX CHOCOLATED PIECES (NCH) [Suspect]
     Dosage: 60 MG, QD
     Route: 048
     Dates: start: 20100520, end: 20100520
  3. EX-LAX CHOCOLATED PIECES (NCH) [Suspect]
     Dosage: 30 MG, QD
     Route: 048
     Dates: start: 20100519, end: 20100519
  4. EFFEXOR [Concomitant]
     Dosage: UNK, UNK

REACTIONS (6)
  - ABDOMINAL PAIN UPPER [None]
  - DRUG INEFFECTIVE [None]
  - MALAISE [None]
  - NAUSEA [None]
  - OVERDOSE [None]
  - RENAL PAIN [None]
